FAERS Safety Report 13790916 (Version 2)
Quarter: 2017Q3

REPORT INFORMATION
  Report Type: Report from Study
  Country: CA (occurrence: CA)
  Receive Date: 20170725
  Receipt Date: 20170731
  Transmission Date: 20171127
  Serious: Yes (Other)
  Sender: FDA-Public Use
  Company Number: CA-JNJFOC-20170711866

PATIENT
  Age: 68 Year
  Sex: Male

DRUGS (2)
  1. IMBRUVICA [Suspect]
     Active Substance: IBRUTINIB
     Indication: MANTLE CELL LYMPHOMA RECURRENT
     Route: 048
     Dates: start: 20170707
  2. RITUXIMAB. [Concomitant]
     Active Substance: RITUXIMAB

REACTIONS (3)
  - Atrial fibrillation [Unknown]
  - Chest discomfort [Recovered/Resolved]
  - Haemorrhagic diathesis [Unknown]

NARRATIVE: CASE EVENT DATE: 201707
